FAERS Safety Report 21593404 (Version 1)
Quarter: 2022Q4

REPORT INFORMATION
  Report Type: Report from Study
  Country: US (occurrence: US)
  Receive Date: 20221114
  Receipt Date: 20221114
  Transmission Date: 20230112
  Serious: No
  Sender: FDA-Public Use
  Company Number: US-ABBVIE-4195559

PATIENT
  Age: 95 Year
  Sex: Male

DRUGS (8)
  1. VENCLEXTA [Suspect]
     Active Substance: VENETOCLAX
     Indication: Acute myeloid leukaemia
     Dosage: DRUG STOP DATE- 2022
     Route: 048
     Dates: start: 20220425
  2. ALLOPURINOL [Concomitant]
     Active Substance: ALLOPURINOL
     Indication: Product used for unknown indication
  3. ONDANSETRON [Concomitant]
     Active Substance: ONDANSETRON
     Indication: Product used for unknown indication
  4. BACTRIM [Concomitant]
     Active Substance: SULFAMETHOXAZOLE\TRIMETHOPRIM
     Indication: Product used for unknown indication
  5. LUMIGAN [Concomitant]
     Active Substance: BIMATOPROST
     Indication: Product used for unknown indication
  6. DEXAMETHASONE [Concomitant]
     Active Substance: DEXAMETHASONE
     Indication: Product used for unknown indication
  7. VALTREX [Concomitant]
     Active Substance: VALACYCLOVIR HYDROCHLORIDE
     Indication: Product used for unknown indication
  8. HYDREA [Concomitant]
     Active Substance: HYDROXYUREA
     Indication: Product used for unknown indication

REACTIONS (1)
  - Urinary tract infection [Recovering/Resolving]

NARRATIVE: CASE EVENT DATE: 20221105
